FAERS Safety Report 15452064 (Version 1)
Quarter: 2018Q4

REPORT INFORMATION
  Report Type: Spontaneous
  Country: US (occurrence: US)
  Receive Date: 20181001
  Receipt Date: 20181001
  Transmission Date: 20190204
  Serious: No
  Sender: FDA-Public Use
  Company Number: US-BAYER-2018-176261

PATIENT
  Age: 71 Year
  Sex: Male

DRUGS (3)
  1. AFINITOR [Suspect]
     Active Substance: EVEROLIMUS
     Indication: RENAL CANCER
     Dosage: 5 MG DAILY
     Route: 048
     Dates: start: 20180727
  2. NEXAVAR [Suspect]
     Active Substance: SORAFENIB
     Indication: RENAL CANCER
     Dosage: 200 MG DAILY
     Route: 048
     Dates: start: 201808, end: 2018
  3. LENVATINIB [Suspect]
     Active Substance: LENVATINIB
     Indication: RENAL CANCER
     Dosage: 10 MG DAILY
     Route: 048
     Dates: start: 20180727

REACTIONS (2)
  - Blood pressure abnormal [Not Recovered/Not Resolved]
  - Off label use [None]
